FAERS Safety Report 19287879 (Version 3)
Quarter: 2021Q3

REPORT INFORMATION
  Report Type: Spontaneous
  Country: US (occurrence: US)
  Receive Date: 20210521
  Receipt Date: 20210727
  Transmission Date: 20211014
  Serious: Yes (Other)
  Sender: FDA-Public Use
  Company Number: US-BIOHAVEN PHARMACEUTICALS-2021BHV00639

PATIENT
  Age: 72 Year
  Sex: Female
  Weight: 61 kg

DRUGS (15)
  1. MECLIZINE [Concomitant]
     Active Substance: MECLIZINE HYDROCHLORIDE
     Dosage: 25 MG, 3X/DAY AS NEEDED
     Route: 048
  2. PROPRANOLOL [Concomitant]
     Active Substance: PROPRANOLOL HYDROCHLORIDE
     Dosage: 10 MG, 2X/DAY
     Route: 048
  3. VITAMIN A [Concomitant]
     Active Substance: VITAMIN A
  4. METOPROLOL. [Concomitant]
     Active Substance: METOPROLOL
  5. AMITRIPTYLINE [Concomitant]
     Active Substance: AMITRIPTYLINE
     Dosage: AT BEDTIME
     Route: 048
  6. SENNA [Concomitant]
     Active Substance: SENNA LEAF\SENNOSIDES\SENNOSIDES A AND B
  7. WARFARIN [Concomitant]
     Active Substance: WARFARIN
  8. VITAMIN B2 [Concomitant]
     Active Substance: RIBOFLAVIN
  9. ESCITALOPRAM [Concomitant]
     Active Substance: ESCITALOPRAM OXALATE
     Dosage: 20 MG, 1X/DAY
     Route: 048
  10. LORAZEPAM. [Concomitant]
     Active Substance: LORAZEPAM
     Dosage: 0.5 MG, 1X/DAY
     Route: 048
  11. TRAZODONE [Concomitant]
     Active Substance: TRAZODONE HYDROCHLORIDE
     Dosage: 25 MG AT BEDTIME
     Route: 048
  12. SUMATRIPTAN. [Concomitant]
     Active Substance: SUMATRIPTAN
     Dosage: 50 MG, ONCE AS NEEDED, MAY GIVE SECOND DOSE 2 HOURS LATER IF NEEDED
     Route: 048
  13. UBROGEPANT [Concomitant]
     Active Substance: UBROGEPANT
     Dosage: UNK, ONCE
     Route: 048
  14. NURTEC ODT [Suspect]
     Active Substance: RIMEGEPANT SULFATE
     Indication: MIGRAINE PROPHYLAXIS
     Dosage: 75 MG, ONCE
     Route: 048
     Dates: start: 20210503, end: 20210504
  15. METOCLOPRAMIDE. [Concomitant]
     Active Substance: METOCLOPRAMIDE
     Dosage: 5 MG, EVERY 6 HOURS AS NEEDED
     Route: 048

REACTIONS (6)
  - Dehydration [Recovered/Resolved]
  - Vomiting projectile [Recovered/Resolved]
  - Drug ineffective [Recovered/Resolved]
  - Feeding disorder [Recovered/Resolved]
  - Migraine [Recovered/Resolved]
  - Off label use [Recovered/Resolved]

NARRATIVE: CASE EVENT DATE: 20210503
